FAERS Safety Report 8516341-2 (Version None)
Quarter: 2012Q3

REPORT INFORMATION
  Report Type: 
  Country: None (occurrence: None)
  Receive Date: 20120718
  Receipt Date: 20120704
  Transmission Date: 20120928
  Serious: Yes (Other)
  Sender: FDA-Public Use
  Company Number: NL-AMGEN-NLDSP2012042806

PATIENT
  Age: 73 Year
  Sex: Female

DRUGS (2)
  1. ENBREL [Suspect]
     Indication: RHEUMATOID ARTHRITIS
     Dosage: 50 MG, WEEKLY
     Dates: start: 20090101
  2. ARAVA [Concomitant]
     Dosage: UNK UNK, UNK

REACTIONS (4)
  - DRUG INEFFECTIVE [None]
  - HEART VALVE REPLACEMENT [None]
  - FALL [None]
  - LOWER LIMB FRACTURE [None]
